FAERS Safety Report 7945452-5 (Version None)
Quarter: 2011Q4

REPORT INFORMATION
  Report Type: 
  Country: None (occurrence: None)
  Receive Date: 20111129
  Receipt Date: 20111117
  Transmission Date: 20120403
  Serious: Yes (Other)
  Sender: FDA-Public Use
  Company Number: GB-ELI_LILLY_AND_COMPANY-GB201105003661

PATIENT
  Sex: Female
  Weight: 100 kg

DRUGS (4)
  1. BYETTA [Suspect]
     Dosage: 5 UG, BID
     Route: 058
     Dates: start: 20110428, end: 20110507
  2. RAMIPRIL [Concomitant]
     Dosage: 5 MG, QD
  3. AMITRIPTYLINE HCL [Concomitant]
     Dosage: 10 MG, QD
  4. SIMVASTATIN [Concomitant]
     Dosage: 40 MG, QD

REACTIONS (2)
  - DYSPEPSIA [None]
  - PANCREATITIS ACUTE [None]
